FAERS Safety Report 6611642-7 (Version None)
Quarter: 2010Q1

REPORT INFORMATION
  Report Type: 
  Country: None (occurrence: None)
  Receive Date: 20100303
  Receipt Date: 20100219
  Transmission Date: 20100710
  Serious: Yes (Hospitalization)
  Sender: FDA-Public Use
  Company Number: US-JNJFOC-20100210345

PATIENT
  Age: 8 Month
  Sex: Female
  Weight: 12 kg

DRUGS (2)
  1. TYLENOL (CAPLET) [Suspect]
  2. TYLENOL (CAPLET) [Suspect]
     Indication: RESPIRATORY DISORDER

REACTIONS (5)
  - ACUTE HEPATIC FAILURE [None]
  - DRUG DISPENSING ERROR [None]
  - HAEMATEMESIS [None]
  - INCORRECT DRUG DOSAGE FORM ADMINISTERED [None]
  - LETHARGY [None]
